FAERS Safety Report 11432942 (Version 3)
Quarter: 2016Q2

REPORT INFORMATION
  Report Type: Report from Study
  Country: US (occurrence: US)
  Receive Date: 20150828
  Receipt Date: 20160401
  Transmission Date: 20160815
  Serious: Yes (Other)
  Sender: FDA-Public Use
  Company Number: US-BIOMARINAP-US-2015-107211

PATIENT
  Sex: Female

DRUGS (2)
  1. OXYGEN. [Concomitant]
     Active Substance: OXYGEN
     Indication: CARDIAC DISORDER
  2. ALDURAZYME [Suspect]
     Active Substance: LARONIDASE
     Indication: MUCOPOLYSACCHARIDOSIS I
     Dosage: 40.6 MG, QW
     Route: 041
     Dates: start: 20030611

REACTIONS (2)
  - Heart valve replacement [Not Recovered/Not Resolved]
  - Pulmonary valve disease [Not Recovered/Not Resolved]
